FAERS Safety Report 21034623 (Version 2)
Quarter: 2022Q3

REPORT INFORMATION
  Report Type: Spontaneous
  Country: IT (occurrence: IT)
  Receive Date: 20220701
  Receipt Date: 20220711
  Transmission Date: 20221027
  Serious: Yes (Hospitalization, Other)
  Sender: FDA-Public Use
  Company Number: IT-MYLANLABS-2022M1049121

PATIENT
  Age: 84 Year
  Sex: Male

DRUGS (1)
  1. MESALAMINE [Suspect]
     Active Substance: MESALAMINE
     Indication: Pancreatic failure
     Dosage: UNK
     Route: 065

REACTIONS (8)
  - Diarrhoea [Recovered/Resolved]
  - Drug ineffective [Unknown]
  - Hypokalaemia [Unknown]
  - Dystonia [Recovering/Resolving]
  - Urosepsis [Recovered/Resolved]
  - Haemoglobin decreased [Unknown]
  - Blood creatine phosphokinase increased [Unknown]
  - Hypocalcaemia [Unknown]

NARRATIVE: CASE EVENT DATE: 20211118
